FAERS Safety Report 19442920 (Version 1)
Quarter: 2021Q2

REPORT INFORMATION
  Report Type: Spontaneous
  Country: GB (occurrence: GB)
  Receive Date: 20210621
  Receipt Date: 20210621
  Transmission Date: 20210717
  Serious: Yes (Other)
  Sender: FDA-Public Use
  Company Number: GB-TEVA-2021-GB-1923609

PATIENT
  Age: 47 Year
  Sex: Male

DRUGS (2)
  1. LEVOTHYROXINE. [Suspect]
     Active Substance: LEVOTHYROXINE
     Indication: HYPOTHYROIDISM
     Dosage: UNK
     Route: 065
  2. LEVOTHYROXINE. [Suspect]
     Active Substance: LEVOTHYROXINE
     Dosage: 150 MICROGRAM DAILY;  (TITRATED OVER 9 MONTHS)

REACTIONS (6)
  - Insomnia [Unknown]
  - Temperature intolerance [Unknown]
  - Palpitations [Unknown]
  - Drug intolerance [Unknown]
  - Hyperthyroidism [Unknown]
  - Hyperhidrosis [Unknown]
